FAERS Safety Report 6037346-X (Version None)
Quarter: 2009Q1

REPORT INFORMATION
  Report Type: 
  Country: None (occurrence: None)
  Receive Date: 20090114
  Receipt Date: 20090107
  Transmission Date: 20090719
  Serious: Yes (Death, Hospitalization)
  Sender: FDA-Public Use
  Company Number: PHHO2007MX11936

PATIENT
  Sex: Female

DRUGS (1)
  1. DIOVAN HCT [Suspect]
     Indication: HYPERTENSION
     Dosage: 80/12.5MG DAILY
     Route: 048
     Dates: start: 20070201, end: 20070701

REACTIONS (3)
  - CARDIO-RESPIRATORY ARREST [None]
  - DYSPNOEA [None]
  - HYPONATRAEMIA [None]
